FAERS Safety Report 18606569 (Version 1)
Quarter: 2020Q4

REPORT INFORMATION
  Report Type: Spontaneous
  Country: IT (occurrence: IT)
  Receive Date: 20201212
  Receipt Date: 20201212
  Transmission Date: 20210114
  Serious: Yes (Hospitalization, Other)
  Sender: FDA-Public Use
  Company Number: IT-LUPIN PHARMACEUTICALS INC.-2020-03330

PATIENT
  Age: 62 Year
  Sex: Female

DRUGS (8)
  1. FENTANYL CITRATE. [Concomitant]
     Active Substance: FENTANYL CITRATE
     Dosage: 37 MICROGRAM QD (PER HOUR)
     Route: 062
  2. DENOSUMAB [Concomitant]
     Active Substance: DENOSUMAB
     Indication: CLEAR CELL RENAL CELL CARCINOMA
     Dosage: UNK
     Route: 065
  3. PREGABALIN. [Concomitant]
     Active Substance: PREGABALIN
     Indication: PAIN
     Dosage: 150 MILLIGRAM, BID
     Route: 065
  4. MORPHINE [Suspect]
     Active Substance: MORPHINE
     Indication: PAIN
     Dosage: 30 MILLIGRAM, QD
     Route: 058
  5. MORPHINE [Suspect]
     Active Substance: MORPHINE
     Indication: BREAKTHROUGH PAIN
     Dosage: 5 MIILLIGRAM (EVERY THREE HOURS )
     Route: 042
  6. SUNITINIB [Concomitant]
     Active Substance: SUNITINIB
     Indication: CLEAR CELL RENAL CELL CARCINOMA
  7. FENTANYL CITRATE. [Concomitant]
     Active Substance: FENTANYL CITRATE
     Indication: BREAKTHROUGH PAIN
     Dosage: 133 MICROGRAM QD (MAXIMUM OF 5 TABLETS/DAY)
     Route: 002
  8. FENTANYL CITRATE. [Concomitant]
     Active Substance: FENTANYL CITRATE
     Indication: PAIN
     Dosage: 25 MICROGRAM QD (PER HOUR)
     Route: 062

REACTIONS (1)
  - Drug dependence [Unknown]
